FAERS Safety Report 8351886-X (Version None)
Quarter: 2012Q2

REPORT INFORMATION
  Report Type: 
  Country: None (occurrence: None)
  Receive Date: 20120511
  Receipt Date: 20120508
  Transmission Date: 20120825
  Serious: Yes (Other)
  Sender: FDA-Public Use
  Company Number: US-PFIZER INC-2012113151

PATIENT
  Sex: Male

DRUGS (1)
  1. SUTENT [Suspect]
     Indication: RENAL CANCER
     Dosage: 50 MG, 1X/DAY
     Dates: start: 20120427

REACTIONS (4)
  - BURNING SENSATION [None]
  - EYELID IRRITATION [None]
  - BLOOD PRESSURE INCREASED [None]
  - DYSPEPSIA [None]
